FAERS Safety Report 6022543-X (Version None)
Quarter: 2008Q4

REPORT INFORMATION
  Report Type: 
  Country: None (occurrence: None)
  Receive Date: 20081230
  Receipt Date: 20081219
  Transmission Date: 20090506
  Serious: Yes (Other)
  Sender: FDA-Public Use
  Company Number: PHHY2008BR32142

PATIENT
  Sex: Female
  Weight: 72 kg

DRUGS (5)
  1. GALVUS MET COMBIPACK [Suspect]
     Indication: DIABETES MELLITUS
     Dosage: 850 MG METFORMIN/50 MG VILDAGLIPTIN AT LUNCH
     Route: 048
     Dates: start: 20080717
  2. GALVUS MET COMBIPACK [Suspect]
     Indication: PROTEIN URINE
     Dosage: 500 MG METFORMIN/50 MG VILDAGLIPTIN AT LUNCH
     Route: 048
     Dates: start: 20080828
  3. BETAHISTINE HYDROCHLORIDE [Concomitant]
     Indication: LABYRINTHITIS
     Dosage: 16 MG, ONCE/SINGLE
     Route: 048
     Dates: start: 20080717
  4. VYTORIN [Concomitant]
     Indication: PROTEIN URINE
     Dosage: 1 TAB (10/20 MG) PER DAY
     Route: 048
     Dates: start: 20080901
  5. BALCOR [Concomitant]
     Indication: BLOOD PRESSURE
     Dosage: 120 MG, UNK
     Route: 048
     Dates: start: 20081001

REACTIONS (4)
  - ABDOMINAL PAIN UPPER [None]
  - PROTEIN URINE PRESENT [None]
  - URINE ABNORMALITY [None]
  - WEIGHT DECREASED [None]
